FAERS Safety Report 5671870-4 (Version None)
Quarter: 2008Q1

REPORT INFORMATION
  Report Type: 
  Country: None (occurrence: None)
  Receive Date: 20080317
  Receipt Date: 20080317
  Transmission Date: 20080703
  Serious: Yes (Life-Threatening, Hospitalization)
  Sender: FDA-Public Use
  Company Number: None

PATIENT
  Sex: Female
  Weight: 86.1834 kg

DRUGS (1)
  1. LYBREL [Suspect]
     Indication: MENORRHAGIA
     Dosage: 1 PILL DAILY PO
     Route: 048
     Dates: start: 20070910, end: 20070919

REACTIONS (1)
  - PULMONARY THROMBOSIS [None]
